FAERS Safety Report 6767444-4 (Version None)
Quarter: 2010Q2

REPORT INFORMATION
  Report Type: 
  Country: None (occurrence: None)
  Receive Date: 20100614
  Receipt Date: 20100531
  Transmission Date: 20101027
  Serious: Yes (Other)
  Sender: FDA-Public Use
  Company Number: PHHY2010BR35494

PATIENT
  Sex: Male
  Weight: 75 kg

DRUGS (7)
  1. DIOVAN [Suspect]
     Indication: HYPERTENSION
     Dosage: 320 MG
  2. RASILEZ [Suspect]
     Indication: HYPERTENSION
     Dosage: 300 MG
  3. RASILEZ [Suspect]
     Indication: PROTEIN TOTAL DECREASED
  4. SIMVASTATIN [Concomitant]
     Indication: BLOOD CHOLESTEROL INCREASED
     Dosage: 80 MG (1 TABLET AT NIGHT)
  5. SIMVASTATIN [Concomitant]
     Indication: BLOOD TRIGLYCERIDES INCREASED
  6. ATENOLOL [Concomitant]
     Indication: HYPERTENSION
     Dosage: 50 MG
  7. AMLODIPINE BESYLATE [Concomitant]
     Indication: HYPERTENSION
     Dosage: 5 MG

REACTIONS (8)
  - APTYALISM [None]
  - BURNING SENSATION [None]
  - CHEST PAIN [None]
  - DRY MOUTH [None]
  - HYPERTENSION [None]
  - MUSCULOSKELETAL PAIN [None]
  - PROTEINURIA [None]
  - SPEECH DISORDER [None]
